FAERS Safety Report 9829843 (Version 6)
Quarter: 2014Q2

REPORT INFORMATION
  Report Type: Spontaneous
  Country: CA (occurrence: CA)
  Receive Date: 20140120
  Receipt Date: 20140508
  Transmission Date: 20141212
  Serious: Yes (Other)
  Sender: FDA-Public Use
  Company Number: CA-ROCHE-1334582

PATIENT
  Age: 52 Year
  Sex: Male
  Weight: 90 kg

DRUGS (18)
  1. XOLAIR [Suspect]
     Indication: ASTHMA
     Route: 058
     Dates: start: 20100218
  2. XOLAIR [Suspect]
     Route: 058
     Dates: start: 20130326
  3. XOLAIR [Suspect]
     Route: 058
     Dates: start: 20130904
  4. XOLAIR [Suspect]
     Route: 058
     Dates: start: 201309
  5. XOLAIR [Suspect]
     Route: 058
     Dates: start: 20131015
  6. XOLAIR [Suspect]
     Route: 058
     Dates: start: 20131128
  7. XOLAIR [Suspect]
     Route: 058
     Dates: start: 20131210
  8. XOLAIR [Suspect]
     Route: 065
     Dates: start: 20140107
  9. XOLAIR [Suspect]
     Route: 058
     Dates: start: 20140123
  10. XOLAIR [Suspect]
     Route: 058
     Dates: start: 20140207
  11. XOLAIR [Suspect]
     Route: 058
     Dates: start: 20140220
  12. XOLAIR [Suspect]
     Route: 058
     Dates: start: 20140416
  13. XOLAIR [Suspect]
     Route: 058
     Dates: start: 20140429
  14. PREDNISONE [Concomitant]
     Route: 048
     Dates: start: 20110610
  15. PREDNISONE [Concomitant]
     Route: 065
     Dates: start: 201302
  16. ALVESCO [Concomitant]
  17. SINGULAIR [Concomitant]
  18. ADVAIR [Concomitant]

REACTIONS (16)
  - Blood pressure increased [Not Recovered/Not Resolved]
  - Blood pressure diastolic decreased [Recovered/Resolved]
  - Arthritis [Unknown]
  - Dyspnoea [Unknown]
  - Productive cough [Unknown]
  - Respiratory tract congestion [Unknown]
  - Malaise [Unknown]
  - Hunger [Unknown]
  - Wheezing [Unknown]
  - Muscle spasms [Unknown]
  - Fatigue [Unknown]
  - Cough [Unknown]
  - Dizziness [Unknown]
  - Nausea [Unknown]
  - Nasopharyngitis [Unknown]
  - Upper respiratory tract infection [Unknown]
